FAERS Safety Report 7780652-9 (Version None)
Quarter: 2011Q3

REPORT INFORMATION
  Report Type: 
  Country: None (occurrence: None)
  Receive Date: 20110927
  Receipt Date: 20110217
  Transmission Date: 20111222
  Serious: Yes (Hospitalization)
  Sender: FDA-Public Use
  Company Number: US-BRISTOL-MYERS SQUIBB COMPANY-15556038

PATIENT
  Age: 71 Year
  Sex: Male

DRUGS (1)
  1. AVAPRO [Suspect]
     Indication: HYPERTENSION
     Dosage: 1 DF:150/12.5 UNIT NOS

REACTIONS (3)
  - HYPERSENSITIVITY [None]
  - MALAISE [None]
  - GAIT DISTURBANCE [None]
